FAERS Safety Report 8612789-6 (Version None)
Quarter: 2012Q3

REPORT INFORMATION
  Report Type: 
  Country: None (occurrence: None)
  Receive Date: 20120822
  Receipt Date: 20120501
  Transmission Date: 20120928
  Serious: No
  Sender: FDA-Public Use
  Company Number: US-ASTRAZENECA-2000AU14749

PATIENT
  Age: 55 Year
  Sex: Female
  Weight: 49.4 kg

DRUGS (12)
  1. SYMBICORT [Suspect]
     Dosage: 1 DF BID
     Route: 055
     Dates: start: 20120301
  2. PRILOSEC [Suspect]
     Indication: GASTROOESOPHAGEAL REFLUX DISEASE
     Route: 048
     Dates: start: 20001028
  3. FLUTICASONE PROPIONATE [Concomitant]
     Indication: SINUS CONGESTION
     Route: 045
  4. LISINOPRIL [Suspect]
     Indication: HYPERTENSION
     Route: 048
  5. COMBIVENT [Concomitant]
     Indication: INHALATION THERAPY
     Route: 055
  6. SODIUM CHLORIDE 0.9% [Concomitant]
  7. SYMBICORT [Suspect]
     Dosage: 1 DF BID
     Route: 055
     Dates: start: 20120301
  8. LASIX [Concomitant]
     Indication: FLUID RETENTION
     Route: 048
  9. RANITIDINE [Concomitant]
     Indication: GASTROOESOPHAGEAL REFLUX DISEASE
     Route: 048
  10. SYMBICORT [Suspect]
     Indication: ASTHMA
     Dosage: 1 DF BID
     Route: 055
     Dates: start: 20120224
  11. SYMBICORT [Suspect]
     Indication: CHRONIC OBSTRUCTIVE PULMONARY DISEASE
     Dosage: 1 DF BID
     Route: 055
     Dates: start: 20120224
  12. ZOCOR [Concomitant]
     Indication: BLOOD CHOLESTEROL ABNORMAL
     Route: 048

REACTIONS (16)
  - NASOPHARYNGITIS [None]
  - GAIT DISTURBANCE [None]
  - IMMUNE SYSTEM DISORDER [None]
  - COUGH [None]
  - NAUSEA [None]
  - CARDIAC FAILURE CONGESTIVE [None]
  - DIABETES MELLITUS [None]
  - BACK PAIN [None]
  - FATIGUE [None]
  - ABDOMINAL PAIN LOWER [None]
  - MUSCULOSKELETAL PAIN [None]
  - VOMITING [None]
  - CHILLS [None]
  - HEADACHE [None]
  - OFF LABEL USE [None]
  - CHEST PAIN [None]
